FAERS Safety Report 13171255 (Version 3)
Quarter: 2017Q1

REPORT INFORMATION
  Report Type: Report from Study
  Country: MX (occurrence: MX)
  Receive Date: 20170201
  Receipt Date: 20170223
  Transmission Date: 20170428
  Serious: Yes (Death, Hospitalization, Other)
  Sender: FDA-Public Use
  Company Number: PHHY2017MX013962

PATIENT
  Age: 63 Year
  Sex: Female
  Weight: 63 kg

DRUGS (5)
  1. ISORBID [Concomitant]
     Active Substance: ISOSORBIDE DINITRATE
     Indication: HYPERTENSION
     Dosage: 1 DF, QD
     Route: 048
     Dates: start: 201511, end: 20170215
  2. INSULIN [Concomitant]
     Active Substance: INSULIN NOS
     Indication: DIABETES MELLITUS
     Dosage: 30 U, QD
     Route: 058
     Dates: start: 20170203
  3. RASILEZ [Suspect]
     Active Substance: ALISKIREN
     Indication: HYPERTENSION
     Dosage: 1 DF, QD
     Route: 048
     Dates: start: 201511, end: 20170215
  4. CONCOR [Concomitant]
     Active Substance: BISOPROLOL FUMARATE
     Indication: HYPERTENSION
     Dosage: 1 DF, QD
     Route: 048
     Dates: start: 201501, end: 20170215
  5. GLIMETAL [Concomitant]
     Indication: DIABETES MELLITUS
     Dosage: 1 DF (1/500 MG), QD (18 YEARS AGO)
     Route: 048
     Dates: end: 20170203

REACTIONS (13)
  - Blood potassium decreased [Unknown]
  - Pneumonia [Recovered/Resolved]
  - Cough [Recovering/Resolving]
  - Blood glucose increased [Fatal]
  - Muscular weakness [Unknown]
  - Drug prescribing error [Unknown]
  - Balance disorder [Unknown]
  - Peritonitis [Fatal]
  - Inflammation [Fatal]
  - Sepsis [Fatal]
  - Pyrexia [Recovering/Resolving]
  - Fall [Unknown]
  - Respiratory arrest [Fatal]

NARRATIVE: CASE EVENT DATE: 20170203
